FAERS Safety Report 4609538-5 (Version None)
Quarter: 2005Q1

REPORT INFORMATION
  Report Type: 
  Country: None (occurrence: None)
  Receive Date: 20050309
  Receipt Date: 20050224
  Transmission Date: 20050727
  Serious: Yes (Other)
  Sender: FDA-Public Use
  Company Number: 200510210BBE

PATIENT
  Sex: Male

DRUGS (10)
  1. KOATE [Suspect]
     Indication: FACTOR VIII DEFICIENCY
  2. KONYNE [Suspect]
     Indication: FACTOR VIII DEFICIENCY
  3. ANTIHEMOPHILIC FACTOR (HUMAN) [Suspect]
     Indication: FACTOR VIII DEFICIENCY
  4. FACTOR IX COMPLEX [Suspect]
     Indication: FACTOR VIII DEFICIENCY
  5. FACTOR VIII (ARMOUR PHARMACEUTICAL) (FACTOR VIII) [Suspect]
     Indication: FACTOR VIII DEFICIENCY
  6. FACTOR IX (ARMOUR PHARMACEUTICAL) (FACTOR IX) [Suspect]
     Indication: FACTOR VIII DEFICIENCY
  7. ANTIHEMOPHILIC FACTOR (HUMAN) [Suspect]
     Indication: FACTOR VIII DEFICIENCY
  8. FACTOR IX COMPLEX [Suspect]
     Indication: FACTOR VIII DEFICIENCY
  9. ANTIHEMOPHILIC FACTOR (HUMAN) [Suspect]
     Indication: FACTOR VIII DEFICIENCY
  10. FACTOR IX COMPLEX [Suspect]
     Indication: FACTOR VIII DEFICIENCY

REACTIONS (11)
  - ACQUIRED IMMUNODEFICIENCY SYNDROME [None]
  - ANOREXIA [None]
  - CACHEXIA [None]
  - DIARRHOEA [None]
  - EYE INFECTION [None]
  - HEPATITIS C VIRUS [None]
  - HIV INFECTION [None]
  - HYPERHIDROSIS [None]
  - LOWER RESPIRATORY TRACT INFECTION [None]
  - NAUSEA [None]
  - PNEUMONIA [None]
